FAERS Safety Report 17192395 (Version 1)
Quarter: 2019Q4

REPORT INFORMATION
  Report Type: Report from Study
  Country: None (occurrence: US)
  Receive Date: 20191223
  Receipt Date: 20191223
  Transmission Date: 20200122
  Serious: No
  Sender: FDA-Public Use
  Company Number: US-ABBVIE-19K-163-3157803-00

PATIENT
  Age: 65 Year
  Sex: Male

DRUGS (4)
  1. IMBRUVICA [Suspect]
     Active Substance: IBRUTINIB
     Dosage: 420 MG, QD
     Route: 048
  2. IMBRUVICA [Suspect]
     Active Substance: IBRUTINIB
     Route: 048
     Dates: start: 20190604
  3. IMBRUVICA [Suspect]
     Active Substance: IBRUTINIB
     Dosage: 140 MG, TID
     Route: 048
  4. IMBRUVICA [Suspect]
     Active Substance: IBRUTINIB
     Indication: MANTLE CELL LYMPHOMA
     Dosage: 420 MG, QD
     Route: 048
     Dates: start: 20190607

REACTIONS (19)
  - Depression [Unknown]
  - Musculoskeletal stiffness [Recovered/Resolved]
  - Rash [Unknown]
  - Prostatic disorder [Unknown]
  - Inappropriate schedule of product administration [Unknown]
  - Night sweats [Recovered/Resolved]
  - Muscle spasms [Recovered/Resolved]
  - Nasopharyngitis [Unknown]
  - Hyperhidrosis [Not Recovered/Not Resolved]
  - Diarrhoea [Recovered/Resolved]
  - Ear infection [Unknown]
  - Sputum discoloured [Not Recovered/Not Resolved]
  - Haematochezia [Recovered/Resolved]
  - Chills [Not Recovered/Not Resolved]
  - Nasopharyngitis [Not Recovered/Not Resolved]
  - Pyrexia [Recovered/Resolved]
  - Feeling hot [Not Recovered/Not Resolved]
  - Viral infection [Recovered/Resolved]
  - Stomatitis [Recovered/Resolved]

NARRATIVE: CASE EVENT DATE: 201909
